FAERS Safety Report 23955075 (Version 1)
Quarter: 2024Q2

REPORT INFORMATION
  Report Type: Spontaneous
  Country: US (occurrence: US)
  Receive Date: 20240610
  Receipt Date: 20240610
  Transmission Date: 20240716
  Serious: No
  Sender: FDA-Public Use
  Company Number: US-AMGEN-USASP2024110921

PATIENT
  Sex: Female

DRUGS (2)
  1. AIMOVIG [Suspect]
     Active Substance: ERENUMAB-AOOE
     Indication: Product used for unknown indication
     Dosage: UNK UNK, UNK
     Route: 065
  2. EMGALITY [Suspect]
     Active Substance: GALCANEZUMAB-GNLM
     Indication: Product used for unknown indication
     Dosage: UNK
     Route: 065

REACTIONS (9)
  - Nightmare [Unknown]
  - Headache [Unknown]
  - Dizziness [Unknown]
  - Anxiety [Unknown]
  - Muscle spasms [Unknown]
  - Amnesia [Unknown]
  - Constipation [Unknown]
  - Chest pain [Unknown]
  - Dysphemia [Unknown]

NARRATIVE: CASE EVENT DATE: 20240528
